FAERS Safety Report 12436563 (Version 3)
Quarter: 2016Q2

REPORT INFORMATION
  Report Type: Spontaneous
  Country: JP (occurrence: JP)
  Receive Date: 20160606
  Receipt Date: 20160623
  Transmission Date: 20160815
  Serious: Yes (Death, Life-Threatening, Hospitalization, Other)
  Sender: FDA-Public Use
  Company Number: JP-TAKEDA-2016TJP011063

PATIENT
  Age: 77 Year
  Sex: Female
  Weight: 35.6 kg

DRUGS (7)
  1. PANTETHINE [Concomitant]
     Active Substance: PANTETHINE
     Indication: CONSTIPATION
     Dosage: 3 G, TID
     Route: 048
     Dates: end: 20160519
  2. SENNOSIDE                          /00571901/ [Concomitant]
     Active Substance: SENNOSIDES A AND B
     Indication: CONSTIPATION
     Dosage: 24 MG, UNK
     Route: 048
     Dates: end: 20160519
  3. LANSOPRAZOLE. [Concomitant]
     Active Substance: LANSOPRAZOLE
     Indication: MYOCARDIAL ISCHAEMIA
     Dosage: 15 MG, QD
     Route: 048
     Dates: end: 20160519
  4. NICORANDIL [Concomitant]
     Active Substance: NICORANDIL
     Dosage: 5 MG, TID
     Route: 048
  5. HUMULIN N [Concomitant]
     Active Substance: INSULIN HUMAN
     Indication: TYPE 2 DIABETES MELLITUS
     Dosage: 8 IU, QD
     Route: 058
     Dates: end: 20160519
  6. NESINA [Suspect]
     Active Substance: ALOGLIPTIN BENZOATE
     Indication: TYPE 2 DIABETES MELLITUS
     Dosage: 6.25 MG, QD
     Route: 048
     Dates: start: 201311, end: 20160519
  7. BASSAMIN [Concomitant]
     Active Substance: ASPIRIN\DIHYDROXYALUMINUM AMINOACETATE\MAGNESIUM CARBONATE
     Indication: MYOCARDIAL ISCHAEMIA
     Dosage: 81 MG, QD
     Route: 048
     Dates: end: 20160519

REACTIONS (5)
  - Pemphigoid [Fatal]
  - Pneumonia [Unknown]
  - Melaena [Unknown]
  - Blood pressure decreased [Unknown]
  - General physical health deterioration [Fatal]

NARRATIVE: CASE EVENT DATE: 201604
